FAERS Safety Report 8174128-7 (Version None)
Quarter: 2012Q1

REPORT INFORMATION
  Report Type: 
  Country: None (occurrence: None)
  Receive Date: 20120229
  Receipt Date: 20120220
  Transmission Date: 20120608
  Serious: Yes (Hospitalization)
  Sender: FDA-Public Use
  Company Number: CZ-ASTRAZENECA-2012SE11449

PATIENT
  Age: 28562 Day
  Sex: Male

DRUGS (15)
  1. ASPIRIN [Suspect]
     Route: 048
     Dates: end: 20120212
  2. XALATAN [Concomitant]
     Indication: GLAUCOMA
     Route: 047
  3. ASPIRIN [Suspect]
     Route: 048
     Dates: start: 20120217
  4. ALLOPURINOL [Concomitant]
     Indication: HYPERURICAEMIA
     Route: 048
     Dates: end: 20120213
  5. NORVASC [Concomitant]
     Indication: HYPERTENSION
     Route: 048
     Dates: end: 20120212
  6. CARVEDILOL [Concomitant]
     Indication: MYOCARDIAL INFARCTION
     Route: 048
  7. MEDEPOLIN [Concomitant]
     Indication: INSOMNIA
     Route: 048
  8. DIOVAN [Concomitant]
     Indication: HYPERTENSION
     Route: 048
  9. CLOPIDOGREL [Concomitant]
     Indication: ANTIPLATELET THERAPY
     Dates: start: 20120125
  10. PURSENNID [Concomitant]
     Indication: CONSTIPATION
     Route: 048
  11. URSO 250 [Concomitant]
     Indication: HEPATITIS C
     Route: 048
  12. PLAVIX [Suspect]
     Indication: CORONARY ARTERY DISEASE
     Route: 048
     Dates: start: 20120125, end: 20120212
  13. STRONGER NEO-MINOPHAGEN C [Concomitant]
     Indication: HEPATITIS C
     Route: 042
  14. ALLOPURINOL [Concomitant]
     Indication: HYPERURICAEMIA
     Route: 048
  15. PRAVASTATIN SODIUM [Concomitant]
     Indication: HYPERLIPIDAEMIA
     Route: 048
     Dates: start: 20120123, end: 20120213

REACTIONS (1)
  - COLITIS ISCHAEMIC [None]
